FAERS Safety Report 24352746 (Version 1)
Quarter: 2024Q3

REPORT INFORMATION
  Report Type: Report from Study
  Country: IT (occurrence: IT)
  Receive Date: 20240923
  Receipt Date: 20240923
  Transmission Date: 20241017
  Serious: No
  Sender: ROCHE
  Company Number: None

PATIENT
  Age: 83 Year
  Sex: Female
  Weight: 50.0 kg

DRUGS (3)
  1. TRASTUZUMAB [Suspect]
     Active Substance: TRASTUZUMAB
     Indication: Breast cancer
     Dosage: I CYCLE - START OF THERAPY 08/18/2023 - THERAPY EVERY 21 DAYS
     Route: 041
     Dates: start: 20230818, end: 20230818
  2. PACLITAXEL [Suspect]
     Active Substance: PACLITAXEL
     Indication: Breast cancer
     Dosage: START OF THERAPY 08/18/2023 - III WEEK - WEEKLY THERAPY - DOSAGE ESTABLISHED BASED ON THE PATIENT^S
     Route: 065
     Dates: start: 20230901, end: 20230901
  3. PERTUZUMAB [Suspect]
     Active Substance: PERTUZUMAB
     Indication: Breast cancer
     Dosage: I CYCLE - START OF THERAPY 08/18/2023 - THERAPY EVERY 21 DAYS
     Route: 065
     Dates: start: 20230818, end: 20230818

REACTIONS (3)
  - Pollakiuria [Recovering/Resolving]
  - Nausea [Recovered/Resolved]
  - Vomiting [Recovered/Resolved]

NARRATIVE: CASE EVENT DATE: 20230902
